FAERS Safety Report 24101283 (Version 1)
Quarter: 2024Q3

REPORT INFORMATION
  Report Type: Spontaneous
  Country: US (occurrence: US)
  Receive Date: 20240717
  Receipt Date: 20240717
  Transmission Date: 20241017
  Serious: No
  Sender: NOVO NORDISK
  Company Number: US-NOVOPROD-1188090

PATIENT
  Sex: Male

DRUGS (1)
  1. OZEMPIC [Suspect]
     Active Substance: SEMAGLUTIDE
     Indication: Product used for unknown indication
     Dosage: UNK
     Route: 058

REACTIONS (7)
  - COVID-19 [Unknown]
  - Neuropathy peripheral [Unknown]
  - Pain [Unknown]
  - Sleep apnoea syndrome [Unknown]
  - Drainage [Unknown]
  - Abdominal distension [Unknown]
  - Blood glucose increased [Unknown]
